FAERS Safety Report 10889853 (Version 1)
Quarter: 2015Q1

REPORT INFORMATION
  Report Type: Report from Study
  Country: US (occurrence: US)
  Receive Date: 20150305
  Receipt Date: 20150305
  Transmission Date: 20150721
  Serious: Yes (Death, Hospitalization, Other)
  Sender: FDA-Public Use
  Company Number: US-GILEAD-2015-0140137

PATIENT
  Age: 63 Year
  Sex: Female

DRUGS (10)
  1. CARDIZEM [Concomitant]
     Active Substance: DILTIAZEM HYDROCHLORIDE
  2. KLOR-CON [Concomitant]
     Active Substance: POTASSIUM CHLORIDE
  3. LASIX [Concomitant]
     Active Substance: FUROSEMIDE
  4. LANOXIN [Concomitant]
     Active Substance: DIGOXIN
  5. SILENOR [Concomitant]
     Active Substance: DOXEPIN HYDROCHLORIDE
  6. AMBRISENTAN [Suspect]
     Active Substance: AMBRISENTAN
     Indication: PULMONARY HYPERTENSION
     Dosage: 10 MG, QD
     Route: 048
     Dates: start: 201111, end: 201502
  7. REVATIO [Concomitant]
     Active Substance: SILDENAFIL CITRATE
  8. METHAMPHETAMINE [Concomitant]
     Active Substance: METHAMPHETAMINE
  9. TYVASO [Concomitant]
     Active Substance: TREPROSTINIL
  10. ZAROXOLYN [Concomitant]
     Active Substance: METOLAZONE

REACTIONS (8)
  - Oliguria [Unknown]
  - Dyspnoea [Unknown]
  - Death [Fatal]
  - Productive cough [Unknown]
  - Hypoxia [Unknown]
  - Renal impairment [Unknown]
  - Respiratory disorder [Unknown]
  - Asthenia [Unknown]
